FAERS Safety Report 7628569-4 (Version None)
Quarter: 2011Q3

REPORT INFORMATION
  Report Type: 
  Country: None (occurrence: None)
  Receive Date: 20110722
  Receipt Date: 20110712
  Transmission Date: 20111222
  Serious: Yes (Death)
  Sender: FDA-Public Use
  Company Number: GB-JNJFOC-20110705707

PATIENT
  Age: 81 Year
  Sex: Male

DRUGS (6)
  1. METHOTREXATE [Concomitant]
  2. INFLIXIMAB, RECOMBINANT [Suspect]
     Route: 042
     Dates: start: 20110217
  3. MORPHINE [Concomitant]
  4. PREDNISOLONE [Concomitant]
  5. INFLIXIMAB, RECOMBINANT [Suspect]
     Indication: RHEUMATOID ARTHRITIS
     Route: 042
     Dates: start: 20030603
  6. FOLIC ACID [Concomitant]

REACTIONS (2)
  - PNEUMONIA [None]
  - COLON CANCER [None]
